FAERS Safety Report 4609399-4 (Version None)
Quarter: 2005Q1

REPORT INFORMATION
  Report Type: 
  Country: None (occurrence: None)
  Receive Date: 20050225
  Receipt Date: 20041117
  Transmission Date: 20050727
  Serious: Yes (Hospitalization)
  Sender: FDA-Public Use
  Company Number: 2004US002289

PATIENT
  Age: 47 Year
  Sex: Male
  Weight: 76.2 kg

DRUGS (10)
  1. ALOXI [Suspect]
     Indication: PROPHYLAXIS OF NAUSEA AND VOMITING
     Dosage: 0.25 MG, SINGLE; INTRAVENOUS (SEE IMAGE)
     Route: 042
     Dates: start: 20041109, end: 20041109
  2. ALOXI [Suspect]
     Indication: PROPHYLAXIS OF NAUSEA AND VOMITING
     Dosage: 0.25 MG, SINGLE; INTRAVENOUS (SEE IMAGE)
     Route: 042
     Dates: start: 20041018, end: 29941018
  3. ATIVAN [Concomitant]
  4. IRINOTECAN HCL [Concomitant]
  5. DEXTROSE INFUSION FLUID 5% (GLUCOSE) [Concomitant]
  6. SODIUM CHLORIDE [Concomitant]
  7. ATROPINE [Concomitant]
  8. THALIDOMIDE [Concomitant]
  9. CARBATROL [Concomitant]
  10. LESCOL [Concomitant]

REACTIONS (3)
  - DRUG INEFFECTIVE [None]
  - NAUSEA [None]
  - VOMITING [None]
